FAERS Safety Report 7031923-5 (Version None)
Quarter: 2010Q4

REPORT INFORMATION
  Report Type: 
  Country: None (occurrence: None)
  Receive Date: 20101001
  Receipt Date: 20100920
  Transmission Date: 20110411
  Serious: Yes (Hospitalization)
  Sender: FDA-Public Use
  Company Number: 1000016489

PATIENT
  Age: 70 Year
  Sex: Female

DRUGS (13)
  1. MEMANTINE HCL [Suspect]
     Indication: DEMENTIA ALZHEIMER'S TYPE
     Dosage: ORAL
     Route: 048
     Dates: start: 20100625, end: 20100627
  2. MODURETIC 5-50 [Suspect]
     Indication: HYPERTENSION
     Dosage: 2.5 MG (2.5 MG, 1 IN 1 D), ORAL
     Route: 048
  3. NEURONTIN [Concomitant]
  4. OMEPRAZOLE [Concomitant]
  5. GAVISCON [Concomitant]
  6. ACETAMINOPHEN [Concomitant]
  7. DEPAKOTE [Concomitant]
  8. LEXOMIL (BROMAZEPAM) [Concomitant]
  9. ZOLPIDEM [Concomitant]
  10. LERCANIDIPINE [Concomitant]
  11. LEVOTHYROXINE SODIUM [Concomitant]
  12. DESLORATADINE [Concomitant]
  13. LANTUS [Concomitant]

REACTIONS (4)
  - HYPONATRAEMIA [None]
  - PARTIAL SEIZURES [None]
  - PSYCHOMOTOR HYPERACTIVITY [None]
  - VOMITING [None]
